FAERS Safety Report 23023921 (Version 2)
Quarter: 2023Q4

REPORT INFORMATION
  Report Type: Spontaneous
  Country: TW (occurrence: TW)
  Receive Date: 20231003
  Receipt Date: 20231108
  Transmission Date: 20240110
  Serious: Yes (Hospitalization)
  Sender: FDA-Public Use
  Company Number: TW-MTPC-MTPC2023-0023867

PATIENT
  Age: 28 Year
  Sex: Male

DRUGS (2)
  1. REMICADE [Suspect]
     Active Substance: INFLIXIMAB
     Indication: Crohn^s disease
     Dosage: 400MG FIRST INDUCTION INJECTION ON 2023-09-18
     Route: 042
     Dates: start: 20230918
  2. REMICADE [Suspect]
     Active Substance: INFLIXIMAB
     Dosage: 400MG SECOND INDUCTION INJECTION ON 2023-10-02
     Route: 042
     Dates: start: 20230918

REACTIONS (5)
  - Abdominal pain [Unknown]
  - Pyrexia [Unknown]
  - Scrotal swelling [Unknown]
  - Chest discomfort [Unknown]
  - Nausea [Unknown]

NARRATIVE: CASE EVENT DATE: 20230920
